FAERS Safety Report 9330002 (Version 2)
Quarter: 2015Q1

REPORT INFORMATION
  Report Type: Spontaneous
  Country: US (occurrence: US)
  Receive Date: 20130604
  Receipt Date: 20150211
  Transmission Date: 20150721
  Serious: No
  Sender: FDA-Public Use
  Company Number: US-ASTRAZENECA-2013SE35380

PATIENT
  Sex: Female

DRUGS (32)
  1. METHOTREXATE [Suspect]
     Active Substance: METHOTREXATE
     Route: 065
  2. SPIRIVA [Concomitant]
     Active Substance: TIOTROPIUM BROMIDE MONOHYDRATE
     Dosage: MORNING, 18 MCG, INHALATION CAPSULE
  3. ZESTRIL [Suspect]
     Active Substance: LISINOPRIL
     Route: 048
  4. PAXIL [Suspect]
     Active Substance: PAROXETINE HYDROCHLORIDE
     Route: 065
  5. ASPIRIN. [Concomitant]
     Active Substance: ASPIRIN
     Route: 048
  6. PROVENTIL [Concomitant]
     Active Substance: ALBUTEROL
     Dosage: AS REQUIRED
  7. CELEBREX (PFIZER) [Concomitant]
     Dosage: AS REQUIRED
     Route: 048
  8. ARIMIDEX [Suspect]
     Active Substance: ANASTROZOLE
     Route: 048
  9. TAMOXIFEN [Suspect]
     Active Substance: TAMOXIFEN
     Route: 065
  10. ADVAIR HFA [Concomitant]
     Active Substance: FLUTICASONE PROPIONATE\SALMETEROL XINAFOATE
  11. CENTRUM SILVER [Concomitant]
     Active Substance: VITAMINS
  12. ERGOCALCIFEROL. [Concomitant]
     Active Substance: ERGOCALCIFEROL
     Route: 048
  13. MULTIVITAMIN [Concomitant]
     Active Substance: VITAMINS
     Route: 048
  14. KEPPRA [Concomitant]
     Active Substance: LEVETIRACETAM
     Route: 048
  15. TRAZODONE [Concomitant]
     Active Substance: TRAZODONE HYDROCHLORIDE
     Dosage: 150 MG , PM
  16. CELEBREX (PFIZER) [Concomitant]
     Route: 048
     Dates: start: 201409
  17. ADVAIR HFA [Concomitant]
     Active Substance: FLUTICASONE PROPIONATE\SALMETEROL XINAFOATE
     Dosage: 500/50
  18. VICODIN [Concomitant]
     Active Substance: ACETAMINOPHEN\HYDROCODONE BITARTRATE
     Dosage: 5-500 MG, 1-2 TABLETS EVERY FOUR HOURS AS NEEDED
     Route: 048
  19. LEVETIRACETAM. [Concomitant]
     Active Substance: LEVETIRACETAM
  20. RECLAST [Concomitant]
     Active Substance: ZOLEDRONIC ACID
     Dosage: 5 MG/100 ML
  21. METOPROLOL TARTRATE. [Concomitant]
     Active Substance: METOPROLOL TARTRATE
     Route: 048
  22. TURMERIC EXTRACT [Concomitant]
  23. CITALOPRAM [Concomitant]
     Active Substance: CITALOPRAM HYDROBROMIDE
     Route: 048
  24. XALATAN (PFIZER) [Concomitant]
  25. LACTAID [Concomitant]
     Active Substance: LACTASE
     Dosage: 9000 FCC PRIOR TO EATING DAIRY
  26. ALBUTEROL. [Concomitant]
     Active Substance: ALBUTEROL
     Dosage: 90 MCG/ACTUATION INHALER, 1-2 PUFFS INTO THE LUNGS, EVERY 4 HOURS
  27. DESYREL [Concomitant]
     Active Substance: TRAZODONE HYDROCHLORIDE
  28. PULMICORT TURBUHALER [Suspect]
     Active Substance: BUDESONIDE
     Route: 055
  29. MORPHINE (NON-AZ PRODUCT) [Suspect]
     Active Substance: MORPHINE
     Route: 065
  30. VITAMIN D [Concomitant]
     Active Substance: CHOLECALCIFEROL
  31. BIO TEARS [Concomitant]
     Dosage: TWICE DAILY
  32. OMEGA 3 [Concomitant]
     Active Substance: OMEGA-3 FATTY ACIDS
     Route: 048

REACTIONS (9)
  - Amnesia [Unknown]
  - Rash [Unknown]
  - Urticaria [Unknown]
  - Bone disorder [Unknown]
  - Vomiting [Unknown]
  - Laryngitis [Unknown]
  - Muscle disorder [Unknown]
  - Drug hypersensitivity [Unknown]
  - Pain [Unknown]
